FAERS Safety Report 7824536-6 (Version None)
Quarter: 2011Q4

REPORT INFORMATION
  Report Type: 
  Country: None (occurrence: None)
  Receive Date: 20111019
  Receipt Date: 20111006
  Transmission Date: 20120403
  Serious: Yes (Hospitalization)
  Sender: FDA-Public Use
  Company Number: US-BAYER-2011-013950

PATIENT
  Age: 46 Year
  Sex: Female
  Weight: 84.354 kg

DRUGS (22)
  1. YASMIN [Suspect]
     Indication: CONTRACEPTION
     Dosage: UNK
     Dates: start: 20060901, end: 20061201
  2. KEFLEX [Concomitant]
     Dosage: UNK
     Dates: start: 20061109, end: 20061116
  3. PROPRANOLOL [Concomitant]
     Indication: MIGRAINE
     Dosage: UNK
     Dates: start: 20060501
  4. LORAZEPAM [Concomitant]
     Indication: CONVULSION
     Dosage: UNK
     Dates: start: 20060607
  5. FLUTICASONE PROPIONATE [Concomitant]
     Dosage: UNK
     Dates: start: 20061101, end: 20070201
  6. NOR-QD [Concomitant]
     Dosage: UNK
     Dates: start: 20061101
  7. MAXALT [Concomitant]
     Indication: MIGRAINE
     Dosage: UNK
     Dates: start: 20060501
  8. PENICILLIN [Concomitant]
     Dosage: UNK
     Dates: start: 20061106, end: 20061116
  9. AUGMENTIN '125' [Concomitant]
     Dosage: UNK
     Dates: start: 20061106, end: 20061116
  10. ROCEPHIN [Concomitant]
     Indication: THROMBOPHLEBITIS SUPERFICIAL
  11. YASMIN [Suspect]
     Indication: PREMENSTRUAL SYNDROME
  12. GABAPENTIN [Concomitant]
     Indication: CONVULSION
     Dosage: UNK
     Dates: start: 20060607
  13. ACETAMINOPHEN W/ CODEINE [Concomitant]
     Indication: PAIN
     Dosage: UNK
     Dates: start: 20061101, end: 20070501
  14. PROAIR HFA [Concomitant]
     Indication: BRONCHOSPASM
     Dosage: UNK
     Dates: start: 20061101, end: 20110701
  15. IBUPROFEN [Concomitant]
     Indication: PAIN
     Dosage: UNK
     Dates: start: 20061101, end: 20070201
  16. ROCEPHIN [Concomitant]
     Indication: CELLULITIS
     Dosage: UNK
     Dates: start: 20061106, end: 20061108
  17. TOPIRAMATE [Concomitant]
     Indication: CONVULSION
     Dosage: UNK
     Dates: start: 20060607
  18. PROMETHAZINE [Concomitant]
     Indication: NAUSEA
     Dosage: UNK
     Dates: start: 20061101, end: 20070201
  19. NOR-QD [Concomitant]
     Dosage: UNK
     Dates: start: 20060701, end: 20061001
  20. LORAZEPAM [Concomitant]
     Dosage: UNK
     Dates: start: 20061101, end: 20110701
  21. LAMOTRIGINE [Concomitant]
     Indication: CONVULSION
     Dosage: UNK
     Dates: start: 20060607
  22. METOCLOPRAMIDE [Concomitant]
     Indication: NAUSEA
     Dosage: UNK
     Dates: start: 20060701, end: 20061001

REACTIONS (5)
  - PULMONARY EMBOLISM [None]
  - INJURY [None]
  - PAIN [None]
  - EMOTIONAL DISTRESS [None]
  - ANXIETY [None]
